FAERS Safety Report 9691418 (Version 2)
Quarter: 2013Q4

REPORT INFORMATION
  Report Type: Report from Study
  Country: CA (occurrence: CA)
  Receive Date: 20131115
  Receipt Date: 20131115
  Transmission Date: 20140711
  Serious: Yes (Hospitalization, Other)
  Sender: FDA-Public Use
  Company Number: PHHY2012CA038333

PATIENT
  Age: 68 Year
  Sex: Male

DRUGS (2)
  1. CLOZARIL [Suspect]
     Dosage: UNK UKN, UNK
     Dates: start: 20010122, end: 20130709
  2. NICOTINE [Concomitant]
     Dosage: 21 MG, QD
     Route: 062

REACTIONS (27)
  - Hypercalcaemia [Recovering/Resolving]
  - Left ventricular dysfunction [Unknown]
  - Anaemia [Unknown]
  - Myocardial infarction [Unknown]
  - Ischaemia [Unknown]
  - Blood potassium increased [Unknown]
  - Nephropathy [Recovered/Resolved]
  - Renal cyst [Unknown]
  - Catatonia [Unknown]
  - Disturbance in attention [Unknown]
  - Malaise [Unknown]
  - Fall [Unknown]
  - Dyspnoea [Unknown]
  - Bundle branch block right [Unknown]
  - Sinus tachycardia [Unknown]
  - Confusional state [Unknown]
  - Dizziness [Unknown]
  - Tardive dyskinesia [Unknown]
  - Pulmonary mass [Unknown]
  - Emphysema [Unknown]
  - Urinary tract infection [Unknown]
  - Agranulocytosis [Unknown]
  - Leukopenia [Unknown]
  - Neutropenia [Unknown]
  - Lice infestation [Unknown]
  - Microangiopathy [Unknown]
  - Light chain analysis increased [Unknown]
